FAERS Safety Report 16243548 (Version 3)
Quarter: 2020Q1

REPORT INFORMATION
  Report Type: Spontaneous
  Country: US (occurrence: US)
  Receive Date: 20190426
  Receipt Date: 20200326
  Transmission Date: 20200409
  Serious: Yes (Other)
  Sender: FDA-Public Use
  Company Number: PHEH2019US017342

PATIENT
  Sex: Male

DRUGS (2)
  1. TASIGNA [Suspect]
     Active Substance: NILOTINIB
     Indication: PRODUCT USED FOR UNKNOWN INDICATION
     Dosage: 150 MG, BID
     Route: 065
  2. TASIGNA [Suspect]
     Active Substance: NILOTINIB
     Dosage: UNK
     Route: 048
     Dates: start: 201805

REACTIONS (7)
  - Disease recurrence [Unknown]
  - Infected cyst [Unknown]
  - Cyst [Unknown]
  - Arthritis [Unknown]
  - Pain [Unknown]
  - Fatigue [Unknown]
  - Skin lesion [Unknown]
